FAERS Safety Report 12351867 (Version 1)
Quarter: 2016Q2

REPORT INFORMATION
  Report Type: Spontaneous
  Country: US (occurrence: US)
  Receive Date: 20160510
  Receipt Date: 20160510
  Transmission Date: 20160815
  Serious: No
  Sender: FDA-Public Use
  Company Number: US-PFIZER INC-2016226462

PATIENT
  Age: 16 Year
  Sex: Female
  Weight: 61.23 kg

DRUGS (1)
  1. ADVIL [Suspect]
     Active Substance: IBUPROFEN
     Indication: HEADACHE
     Dosage: 400 MG, (TOOK TWO TABLETS WHICH ARE 200MG EACH AT SAME TIME)
     Dates: start: 20160416, end: 20160416

REACTIONS (3)
  - Nausea [Recovered/Resolved]
  - Foreign body [Recovered/Resolved]
  - Retching [Recovered/Resolved]

NARRATIVE: CASE EVENT DATE: 20160416
